FAERS Safety Report 21707407 (Version 1)
Quarter: 2022Q4

REPORT INFORMATION
  Report Type: Spontaneous
  Country: PT (occurrence: PT)
  Receive Date: 20221209
  Receipt Date: 20221209
  Transmission Date: 20230112
  Serious: Yes (Hospitalization)
  Sender: FDA-Public Use
  Company Number: PT-002147023-NVSC2022PT286297

PATIENT
  Age: 73 Year
  Sex: Female

DRUGS (3)
  1. ETOPOSIDE [Suspect]
     Active Substance: ETOPOSIDE
     Indication: Gastrointestinal neuroendocrine carcinoma
     Dosage: UNK
     Route: 065
  2. PEGFILGRASTIM [Suspect]
     Active Substance: PEGFILGRASTIM
     Indication: Gastrointestinal neuroendocrine carcinoma
     Dosage: UNK
     Route: 065
  3. CARBOPLATIN [Suspect]
     Active Substance: CARBOPLATIN
     Indication: Gastrointestinal neuroendocrine carcinoma
     Dosage: UNK
     Route: 065

REACTIONS (3)
  - Gastrointestinal neuroendocrine carcinoma [Unknown]
  - Condition aggravated [Unknown]
  - Product use in unapproved indication [Unknown]
